FAERS Safety Report 5151784-9 (Version None)
Quarter: 2006Q4

REPORT INFORMATION
  Report Type: 
  Country: None (occurrence: None)
  Receive Date: 20061107
  Receipt Date: 20061023
  Transmission Date: 20070319
  Serious: Yes (Death, Hospitalization)
  Sender: FDA-Public Use
  Company Number: B0443406A

PATIENT
  Age: 49 Year
  Sex: Female

DRUGS (2)
  1. IMITREX [Suspect]
     Dosage: UNK / UNKNOWN/ ORAL
     Route: 048
  2. WELLBUTRIN [Suspect]
     Dosage: UNK / UNKNOWN / ORAL
     Route: 048

REACTIONS (12)
  - BRADYCARDIA [None]
  - COMA [None]
  - COMPLETED SUICIDE [None]
  - HYPERTENSION [None]
  - LETHARGY [None]
  - MIOSIS [None]
  - PUPILS UNEQUAL [None]
  - PYREXIA [None]
  - TACHYCARDIA [None]
  - TACHYPNOEA [None]
  - THALAMIC INFARCTION [None]
  - VOMITING [None]
